FAERS Safety Report 8393576-3 (Version None)
Quarter: 2012Q2

REPORT INFORMATION
  Report Type: 
  Country: None (occurrence: None)
  Receive Date: 20120530
  Receipt Date: 20120517
  Transmission Date: 20120825
  Serious: Yes (Hospitalization)
  Sender: FDA-Public Use
  Company Number: GB-AMGEN-GBRCT2012032327

PATIENT
  Age: 62 Year
  Sex: Male
  Weight: 91.8 kg

DRUGS (3)
  1. ETANERCEPT [Suspect]
     Indication: PRODUCT USED FOR UNKNOWN INDICATION
     Dosage: 25 MG, QWK
     Dates: start: 20110308
  2. GLUCOSAMINE [Concomitant]
     Dosage: UNK
     Dates: start: 20090701
  3. SIMVASTATIN [Concomitant]
     Dosage: UNK
     Dates: start: 20050701

REACTIONS (1)
  - KNEE ARTHROPLASTY [None]
